FAERS Safety Report 9693326 (Version 2)
Quarter: 2014Q1

REPORT INFORMATION
  Report Type: Spontaneous
  Country: US (occurrence: None)
  Receive Date: 20131114
  Receipt Date: 20140320
  Transmission Date: 20141002
  Serious: Yes (Death, Other)
  Sender: FDA-Public Use
  Company Number: 2013-US-002739

PATIENT
  Age: 20 Year
  Sex: Female

DRUGS (1)
  1. XYREM [Suspect]
     Indication: SLEEP DISORDER
     Route: 048
     Dates: start: 201307, end: 20131013

REACTIONS (3)
  - Respiratory failure [None]
  - Pulmonary oedema [None]
  - Off label use [None]
